FAERS Safety Report 8558198-X (Version None)
Quarter: 2012Q3

REPORT INFORMATION
  Report Type: 
  Country: None (occurrence: None)
  Receive Date: 20120801
  Receipt Date: 20120723
  Transmission Date: 20120928
  Serious: No
  Sender: FDA-Public Use
  Company Number: US-TEVA-349869USA

PATIENT
  Sex: Female
  Weight: 90.8 kg

DRUGS (4)
  1. HYDROCHLOROTHIAZIDE [Concomitant]
     Indication: BLOOD PRESSURE INCREASED
  2. COPAXONE [Suspect]
     Indication: MULTIPLE SCLEROSIS
     Dosage: 20 MILLIGRAM;
     Route: 058
     Dates: start: 20010101
  3. LORTAB [Concomitant]
  4. NEURONTIN [Concomitant]
     Indication: MULTIPLE SCLEROSIS

REACTIONS (1)
  - SKIN CANCER [None]
